FAERS Safety Report 7288186-5 (Version None)
Quarter: 2011Q1

REPORT INFORMATION
  Report Type: 
  Country: None (occurrence: None)
  Receive Date: 20110211
  Receipt Date: 20110202
  Transmission Date: 20110831
  Serious: Yes (Other)
  Sender: FDA-Public Use
  Company Number: AU-JNJFOC-20110201899

PATIENT
  Sex: Male

DRUGS (2)
  1. EPILIM [Concomitant]
     Route: 065
  2. RISPERIDONE [Suspect]
     Indication: ILL-DEFINED DISORDER
     Route: 065

REACTIONS (2)
  - MOVEMENT DISORDER [None]
  - ROAD TRAFFIC ACCIDENT [None]
